FAERS Safety Report 4996544-4 (Version None)
Quarter: 2006Q2

REPORT INFORMATION
  Report Type: 
  Country: None (occurrence: None)
  Receive Date: 20060509
  Receipt Date: 20060202
  Transmission Date: 20061013
  Serious: Yes (Hospitalization)
  Sender: FDA-Public Use
  Company Number: PT-AMGEN-UK167644

PATIENT
  Sex: Female
  Weight: 78 kg

DRUGS (2)
  1. NEULASTA [Suspect]
     Indication: CHEMOTHERAPY
     Route: 058
     Dates: start: 20050722, end: 20050722
  2. RITUXIMAB [Concomitant]
     Indication: CHEMOTHERAPY
     Route: 065
     Dates: start: 20050401, end: 20050721

REACTIONS (3)
  - DIZZINESS [None]
  - HYPOTENSION [None]
  - MUSCULOSKELETAL PAIN [None]
